FAERS Safety Report 20849677 (Version 2)
Quarter: 2022Q2

REPORT INFORMATION
  Report Type: Other
  Country: US (occurrence: None)
  Receive Date: 20220519
  Receipt Date: 20220526
  Transmission Date: 20220720
  Serious: Yes (Death)
  Sender: FDA-Public Use
  Company Number: US-ROCHE-3098347

PATIENT
  Age: 35 Year
  Sex: Male

DRUGS (10)
  1. HEMLIBRA [Suspect]
     Active Substance: EMICIZUMAB-KXWH
     Indication: Factor VIII deficiency
     Dosage: INJECT 300MG SUBCUTANEOUSLY EVERY 7 DAY(S), VIAL
     Route: 058
     Dates: start: 20181115
  2. HEMLIBRA [Suspect]
     Active Substance: EMICIZUMAB-KXWH
     Indication: Haemophilia
  3. BELBUCA [Concomitant]
     Active Substance: BUPRENORPHINE HYDROCHLORIDE
  4. KOGENATE FS [Concomitant]
     Active Substance: ANTIHEMOPHILIC FACTOR, HUMAN RECOMBINANT
  5. AMINOCAPROIC ACID [Concomitant]
     Active Substance: AMINOCAPROIC ACID
  6. DICLOFENAC [Concomitant]
     Active Substance: DICLOFENAC
  7. NALOXONE [Concomitant]
     Active Substance: NALOXONE
  8. OXYCODONE [Concomitant]
     Active Substance: OXYCODONE
  9. TRANEXAMIC ACID [Concomitant]
     Active Substance: TRANEXAMIC ACID
  10. ROSUVASTATIN [Concomitant]
     Active Substance: ROSUVASTATIN

REACTIONS (8)
  - Death [Fatal]
  - Blood sodium decreased [Unknown]
  - Blood osmolarity decreased [Unknown]
  - Red blood cell count decreased [Unknown]
  - Haemoglobin decreased [Unknown]
  - Mean platelet volume decreased [Unknown]
  - Initial insomnia [Unknown]
  - Haemorrhage [Unknown]

NARRATIVE: CASE EVENT DATE: 20220501
